FAERS Safety Report 21041876 (Version 4)
Quarter: 2022Q4

REPORT INFORMATION
  Report Type: Spontaneous
  Country: CA (occurrence: CA)
  Receive Date: 20220705
  Receipt Date: 20221220
  Transmission Date: 20230112
  Serious: Yes (Other)
  Sender: FDA-Public Use
  Company Number: CA-CELLTRION INC.-2021CA002311

PATIENT

DRUGS (13)
  1. INFLECTRA [Suspect]
     Active Substance: INFLIXIMAB-DYYB
     Indication: Crohn^s disease
     Dosage: 800 MG, WEEK 0, 2 AND 6 THEN Q8 WEEKSQ0 HOSPITAL START
     Route: 042
     Dates: start: 20210205, end: 20210205
  2. INFLECTRA [Suspect]
     Active Substance: INFLIXIMAB-DYYB
     Dosage: 800 MG, WEEK 0, 2 AND 6 THEN Q8 WEEKSQ0 HOSPITAL START
     Route: 042
     Dates: start: 20210223
  3. INFLECTRA [Suspect]
     Active Substance: INFLIXIMAB-DYYB
     Dosage: 800 MG, WEEK 0, 2 AND 6 THEN Q8 WEEKSQ0 HOSPITAL START
     Route: 042
     Dates: start: 20210326
  4. INFLECTRA [Suspect]
     Active Substance: INFLIXIMAB-DYYB
     Dosage: 800 MG, WEEK 0, 2 AND 6 THEN Q8 WEEKSQ0 HOSPITAL START
     Route: 042
     Dates: start: 20210601
  5. INFLECTRA [Suspect]
     Active Substance: INFLIXIMAB-DYYB
     Dosage: 800 MG, WEEK 0, 2 AND 6 THEN Q8 WEEKSQ0 HOSPITAL START
     Route: 042
     Dates: start: 20210727
  6. INFLECTRA [Suspect]
     Active Substance: INFLIXIMAB-DYYB
     Dosage: 800 MG, WEEK 0, 2 AND 6 THEN Q8 WEEKSQ0 HOSPITAL START
     Route: 042
     Dates: start: 20210921
  7. INFLECTRA [Suspect]
     Active Substance: INFLIXIMAB-DYYB
     Dosage: 800 MG, WEEK 0, 2 AND 6 THEN Q8 WEEKSQ0 HOSPITAL START
     Route: 042
     Dates: start: 20211112
  8. INFLECTRA [Suspect]
     Active Substance: INFLIXIMAB-DYYB
     Dosage: 800 MG, WEEK 0, 2 AND 6 THEN Q8 WEEKSQ0 HOSPITAL START
     Route: 042
     Dates: start: 20220304
  9. INFLECTRA [Suspect]
     Active Substance: INFLIXIMAB-DYYB
     Dosage: 800 MG, WEEK 0, 2 AND 6 THEN Q8 WEEKSQ0 HOSPITAL START
     Route: 042
     Dates: start: 20220506
  10. INFLECTRA [Suspect]
     Active Substance: INFLIXIMAB-DYYB
     Dosage: 800 MG, WEEK 0, 2 AND 6 THEN Q8 WEEKSQ0 HOSPITAL START
     Route: 042
     Dates: start: 20220624
  11. INFLECTRA [Suspect]
     Active Substance: INFLIXIMAB-DYYB
     Dosage: 800 MG, WEEK 0, 2 AND 6 THEN Q8 WEEKSQ0 HOSPITAL START
     Route: 042
     Dates: start: 20221014
  12. INFLECTRA [Suspect]
     Active Substance: INFLIXIMAB-DYYB
     Dosage: 800 MG, WEEK 0, 2 AND 6 THEN Q8 WEEKSQ0 HOSPITAL START
     Route: 042
     Dates: start: 20221209
  13. ACETAMINOPHEN [Concomitant]
     Active Substance: ACETAMINOPHEN
     Indication: Premedication
     Dosage: 650 MG
     Route: 048
     Dates: start: 20210601, end: 20210601

REACTIONS (10)
  - Heart rate decreased [Not Recovered/Not Resolved]
  - Abdominal pain [Unknown]
  - Diarrhoea [Unknown]
  - Blood pressure increased [Not Recovered/Not Resolved]
  - Blood pressure diastolic increased [Not Recovered/Not Resolved]
  - Blood pressure fluctuation [Unknown]
  - Inappropriate schedule of product administration [Unknown]
  - Off label use [Unknown]
  - Off label use [Unknown]
  - Intentional product use issue [Unknown]

NARRATIVE: CASE EVENT DATE: 20210223
